FAERS Safety Report 4645320-0 (Version None)
Quarter: 2005Q2

REPORT INFORMATION
  Report Type: 
  Country: None (occurrence: None)
  Receive Date: 20050331
  Receipt Date: 20050126
  Transmission Date: 20051028
  Serious: No
  Sender: FDA-Public Use
  Company Number: 05P-163-0285805-00

PATIENT
  Age: 71 Year
  Sex: Female
  Weight: 68.4932 kg

DRUGS (8)
  1. HUMIRA [Suspect]
     Indication: RHEUMATOID ARTHRITIS
     Dosage: 40 MG, 1 IN 2 WK, SUBCUTANEOUS
     Route: 058
     Dates: start: 20041001
  2. ETANERCEPT [Concomitant]
  3. ALENDRONATE SODIUM [Concomitant]
  4. ATORVASTATIN CALCIUM [Concomitant]
  5. FLUOXETINE [Concomitant]
  6. TRIAZADONE [Concomitant]
  7. DIURETICS [Concomitant]
  8. HYDROCODONE BITARTRATE [Concomitant]

REACTIONS (5)
  - INJECTION SITE NODULE [None]
  - INJECTION SITE PAIN [None]
  - INJECTION SITE PRURITUS [None]
  - INJECTION SITE URTICARIA [None]
  - INJECTION SITE WARMTH [None]
